FAERS Safety Report 21610067 (Version 4)
Quarter: 2023Q1

REPORT INFORMATION
  Report Type: Spontaneous
  Country: US (occurrence: US)
  Receive Date: 20221117
  Receipt Date: 20230127
  Transmission Date: 20230418
  Serious: Yes (Death, Hospitalization, Other)
  Sender: FDA-Public Use
  Company Number: US-002147023-NVSC2022US259281

PATIENT
  Age: 75 Year
  Sex: Female
  Weight: 81.64 kg

DRUGS (1)
  1. LUTATHERA [Suspect]
     Active Substance: LUTETIUM OXODOTREOTIDE LU-177
     Indication: Product used for unknown indication
     Dosage: UNK (2 DOSE RECEIVED)
     Route: 065

REACTIONS (5)
  - Death [Fatal]
  - Metastases to liver [Not Recovered/Not Resolved]
  - Metastases to spine [Unknown]
  - Carcinoid tumour [Unknown]
  - Malignant neoplasm progression [Unknown]

NARRATIVE: CASE EVENT DATE: 20221126
